FAERS Safety Report 15372565 (Version 1)
Quarter: 2018Q3

REPORT INFORMATION
  Report Type: Spontaneous
  Country: US (occurrence: US)
  Receive Date: 20180911
  Receipt Date: 20180911
  Transmission Date: 20181010
  Serious: No
  Sender: FDA-Public Use
  Company Number: US-009507513-1809USA004332

PATIENT
  Sex: Female
  Weight: 84.81 kg

DRUGS (1)
  1. COZAAR [Suspect]
     Active Substance: LOSARTAN POTASSIUM
     Dosage: UNK UNK, UNKNOWN
     Route: 048

REACTIONS (1)
  - Drug hypersensitivity [Unknown]
